FAERS Safety Report 6956810-X (Version None)
Quarter: 2010Q3

REPORT INFORMATION
  Report Type: 
  Country: None (occurrence: None)
  Receive Date: 20100826
  Receipt Date: 20100819
  Transmission Date: 20110219
  Serious: Yes (Death, Life-Threatening, Hospitalization, Disabling)
  Sender: FDA-Public Use
  Company Number: 2010JP004305

PATIENT
  Age: 88 Year
  Sex: Male
  Weight: 41 kg

DRUGS (10)
  1. FUNGUARD (MICAFUNGIN) INJECTION [Suspect]
     Indication: EYE INFECTION FUNGAL
     Dosage: 100 MG, UID/QD, IV DRIP; 150 MG, UID/QD, IV DRIP; 200 MG, IV DRIP
     Route: 041
     Dates: start: 20100611, end: 20100615
  2. FUNGUARD (MICAFUNGIN) INJECTION [Suspect]
     Indication: FUNGAL INFECTION
     Dosage: 100 MG, UID/QD, IV DRIP; 150 MG, UID/QD, IV DRIP; 200 MG, IV DRIP
     Route: 041
     Dates: start: 20100611, end: 20100615
  3. FUNGUARD (MICAFUNGIN) INJECTION [Suspect]
     Indication: EYE INFECTION FUNGAL
     Dosage: 100 MG, UID/QD, IV DRIP; 150 MG, UID/QD, IV DRIP; 200 MG, IV DRIP
     Route: 041
     Dates: start: 20100616, end: 20100623
  4. FUNGUARD (MICAFUNGIN) INJECTION [Suspect]
     Indication: FUNGAL INFECTION
     Dosage: 100 MG, UID/QD, IV DRIP; 150 MG, UID/QD, IV DRIP; 200 MG, IV DRIP
     Route: 041
     Dates: start: 20100616, end: 20100623
  5. FUNGUARD (MICAFUNGIN) INJECTION [Suspect]
     Indication: EYE INFECTION FUNGAL
     Dosage: 100 MG, UID/QD, IV DRIP; 150 MG, UID/QD, IV DRIP; 200 MG, IV DRIP
     Route: 041
     Dates: start: 20100624, end: 20100701
  6. FUNGUARD (MICAFUNGIN) INJECTION [Suspect]
     Indication: FUNGAL INFECTION
     Dosage: 100 MG, UID/QD, IV DRIP; 150 MG, UID/QD, IV DRIP; 200 MG, IV DRIP
     Route: 041
     Dates: start: 20100624, end: 20100701
  7. MEROPENEM [Suspect]
     Indication: PNEUMONIA ASPIRATION
     Dosage: 0.5 G, BID, IV NOS
     Route: 042
     Dates: start: 20100530, end: 20100603
  8. MEROPENEM [Suspect]
     Indication: PNEUMONIA ASPIRATION
     Dosage: 0.5 G, BID, IV NOS
     Route: 042
     Dates: start: 20100606, end: 20100610
  9. FIRSTCIN (CEFOZOPRAN HYDROCHLORIDE) INJECTION [Suspect]
     Indication: PNEUMONIA ASPIRATION
     Dosage: 1 G, BID, IV NOS
     Route: 042
     Dates: start: 20100604, end: 20100605
  10. PRODIF (FOSFLUCONAZOLE) INJECTION [Concomitant]

REACTIONS (12)
  - ALANINE AMINOTRANSFERASE INCREASED [None]
  - ASPARTATE AMINOTRANSFERASE INCREASED [None]
  - BLOOD ALKALINE PHOSPHATASE INCREASED [None]
  - BLOOD BETA-D-GLUCAN INCREASED [None]
  - BLOOD BILIRUBIN INCREASED [None]
  - CONDITION AGGRAVATED [None]
  - DEHYDRATION [None]
  - EYE INFECTION FUNGAL [None]
  - HEPATIC FUNCTION ABNORMAL [None]
  - HYPOKALAEMIA [None]
  - RENAL FAILURE [None]
  - RENAL IMPAIRMENT [None]
